FAERS Safety Report 16466763 (Version 1)
Quarter: 2019Q2

REPORT INFORMATION
  Report Type: Spontaneous
  Country: US (occurrence: US)
  Receive Date: 20190623
  Receipt Date: 20190623
  Transmission Date: 20190711
  Serious: No
  Sender: FDA-Public Use
  Company Number: US-TEVA-2019-US-1064309

PATIENT
  Age: 54 Year
  Sex: Female
  Weight: 48.6 kg

DRUGS (13)
  1. HYDROMORPHONE [Suspect]
     Active Substance: HYDROMORPHONE
     Dosage: VIA PATIENT CONTROLLED ANALGESIA AS NEEDED
     Route: 042
  2. SODIUM BICARBONATE. [Concomitant]
     Active Substance: SODIUM BICARBONATE
     Dosage: KETAMINE GEL CONSISTED OF 5% KETAMINE 50 MG/G IN PLURONIC GEL WITH KRIS GEL MIXED WITH WATER AND ...
     Route: 061
  3. SODIUM BICARBONATE. [Concomitant]
     Active Substance: SODIUM BICARBONATE
     Dosage: 15% KETAMINE GEL (150MG/G) IN PLURONIC GEL WITH KRIS GEL MIXED WITH WATER AND BUFFERED BY SODIUM ...
     Route: 061
  4. LIDOCAINE. [Concomitant]
     Active Substance: LIDOCAINE
     Indication: PAIN
     Dosage: KETAMINE 10%/LIDOCAINE 2% GEL WAS COMPOUNDED IN PLURONIC GEL (ONLY) MIXED WITH WATER AND BUFFERED...
     Route: 061
  5. METHADONE [Concomitant]
     Active Substance: METHADONE HYDROCHLORIDE
     Indication: PAIN
     Route: 048
  6. MORPHINE SULFATE EXTENDED RELEASE [Concomitant]
     Active Substance: MORPHINE SULFATE
     Indication: PAIN
     Dosage: FORMULATION: EXTENDED RELEASE
     Route: 048
  7. LIDOCAINE VISCUS [Concomitant]
     Indication: PAIN
  8. HYDROMORPHONE [Suspect]
     Active Substance: HYDROMORPHONE
     Indication: PAIN
     Dosage: VIA PATIENT CONTROLLED ANALGESIA AS NEEDED
     Route: 042
  9. KETAMINE [Suspect]
     Active Substance: KETAMINE
     Indication: PAIN
     Dosage: 5% KETAMINE 50 MG/G IN PLURONIC GEL WITH KRIS GEL MIXED WITH WATER AND BUFFERED BY SODIUM BICARBO...
     Route: 061
  10. SODIUM BICARBONATE. [Concomitant]
     Active Substance: SODIUM BICARBONATE
     Dosage: KETAMINE 10%/LIDOCAINE 2% GEL WAS COMPOUNDED IN PLURONIC GEL (ONLY) MIXED WITH WATER AND BUFFERED...
     Route: 061
  11. HYDROMORPHONE [Suspect]
     Active Substance: HYDROMORPHONE
     Dosage: AS NEEDED
     Route: 048
  12. KETAMINE [Suspect]
     Active Substance: KETAMINE
     Dosage: KETAMINE 10%/LIDOCAINE 2% GEL WAS COMPOUNDED IN PLURONIC GEL (ONLY) MIXED WITH WATER AND BUFFERED...
     Route: 061
  13. GABAPENTIN. [Concomitant]
     Active Substance: GABAPENTIN
     Indication: PAIN
     Dosage: 3600 MILLIGRAM DAILY; 1200 MG THRICE A DAY
     Route: 065

REACTIONS (4)
  - Constipation [Unknown]
  - Overdose [Unknown]
  - Nausea [Unknown]
  - Vomiting [Unknown]
